FAERS Safety Report 18359238 (Version 1)
Quarter: 2020Q4

REPORT INFORMATION
  Report Type: Spontaneous
  Country: US (occurrence: US)
  Receive Date: 20201007
  Receipt Date: 20201007
  Transmission Date: 20210114
  Serious: Yes (Other)
  Sender: FDA-Public Use
  Company Number: None

PATIENT
  Age: 56 Year
  Sex: Female
  Weight: 103.5 kg

DRUGS (3)
  1. LEVOTHYROXINE 25 UG [Concomitant]
  2. VITAMIN D3 [Concomitant]
     Active Substance: CHOLECALCIFEROL
  3. NP THYROID [Suspect]
     Active Substance: LEVOTHYROXINE\LIOTHYRONINE
     Indication: HYPOTHYROIDISM
     Dosage: ?          QUANTITY:180 TABLET(S);?
     Route: 048
     Dates: start: 20191028, end: 20191122

REACTIONS (7)
  - Disturbance in attention [None]
  - Myalgia [None]
  - Middle insomnia [None]
  - Arthralgia [None]
  - Rash pruritic [None]
  - Feeling abnormal [None]
  - Lethargy [None]

NARRATIVE: CASE EVENT DATE: 20191109
